FAERS Safety Report 6445349-6 (Version None)
Quarter: 2009Q4

REPORT INFORMATION
  Report Type: 
  Country: None (occurrence: None)
  Receive Date: 20091112
  Receipt Date: 20091028
  Transmission Date: 20100525
  Serious: Yes (Hospitalization)
  Sender: FDA-Public Use
  Company Number: 232449J09USA

PATIENT
  Age: 31 Year
  Sex: Female
  Weight: 82 kg

DRUGS (3)
  1. REBIF [Suspect]
     Indication: MULTIPLE SCLEROSIS
     Dosage: 44 MCG, 3 IN 1 WEEKS, SUBCUTANEOUS
     Route: 058
     Dates: start: 20090501, end: 20090901
  2. METFORMIN HCL [Concomitant]
  3. DILAUDID [Concomitant]

REACTIONS (3)
  - KIDNEY INFECTION [None]
  - PHARYNGITIS STREPTOCOCCAL [None]
  - VOMITING [None]
